FAERS Safety Report 10418852 (Version 1)
Quarter: 2014Q3

REPORT INFORMATION
  Report Type: Spontaneous
  Country: DE (occurrence: None)
  Receive Date: 20140827
  Receipt Date: 20140827
  Transmission Date: 20150326
  Serious: Yes (Congenital Anomaly, Other)
  Sender: FDA-Public Use
  Company Number: AUR-APL-2014-08977

PATIENT
  Age: 1 Day
  Sex: Female
  Weight: 1.9 kg

DRUGS (2)
  1. FOLIO FORTE [Concomitant]
     Active Substance: FOLIC ACID\VITAMINS
  2. METOPROLOL [Suspect]
     Active Substance: METOPROLOL
     Indication: MIGRAINE PROPHYLAXIS
     Route: 064
     Dates: start: 20120116, end: 20121006

REACTIONS (4)
  - Small for dates baby [None]
  - Maternal drugs affecting foetus [None]
  - Foetal growth restriction [None]
  - Microcephaly [None]

NARRATIVE: CASE EVENT DATE: 20121006
